FAERS Safety Report 10600036 (Version 1)
Quarter: 2014Q4

REPORT INFORMATION
  Report Type: Spontaneous
  Country: US (occurrence: US)
  Receive Date: 20141121
  Receipt Date: 20141121
  Transmission Date: 20150529
  Serious: Yes (Other)
  Sender: FDA-Public Use
  Company Number: US-SA-2014SA046784

PATIENT

DRUGS (1)
  1. RENVELA [Suspect]
     Active Substance: SEVELAMER CARBONATE
     Indication: PRODUCT USED FOR UNKNOWN INDICATION
     Dosage: 2 TABLETS WITH BREAKFAST AND 2 TABLETS WITH DINNER
     Route: 048

REACTIONS (3)
  - Diarrhoea [Unknown]
  - Intestinal obstruction [Unknown]
  - Constipation [Unknown]
